FAERS Safety Report 9791624 (Version 1)
Quarter: 2014Q1

REPORT INFORMATION
  Report Type: Report from Study
  Country: US (occurrence: US)
  Receive Date: 20140102
  Receipt Date: 20140102
  Transmission Date: 20141002
  Serious: Yes (Other)
  Sender: FDA-Public Use
  Company Number: US-ROCHE-1327674

PATIENT
  Age: 16 Year
  Sex: Male
  Weight: 54.5 kg

DRUGS (1)
  1. NUTROPIN AQ [Suspect]
     Indication: BODY HEIGHT BELOW NORMAL
     Route: 058

REACTIONS (2)
  - Epiphyses delayed fusion [Unknown]
  - Nasal congestion [Unknown]
